FAERS Safety Report 5532222-0 (Version None)
Quarter: 2007Q4

REPORT INFORMATION
  Report Type: 
  Country: None (occurrence: None)
  Receive Date: 20071129
  Receipt Date: 20071129
  Transmission Date: 20080405
  Serious: Yes (Death, Life-Threatening, Hospitalization)
  Sender: FDA-Public Use
  Company Number: None

PATIENT
  Age: 70 Year
  Sex: Female
  Weight: 61 kg

DRUGS (13)
  1. AVASTIN [Suspect]
     Indication: OVARIAN CANCER METASTATIC
     Dosage: 10 MG/2 KG DAYS 1, 15
     Dates: start: 20070719
  2. AVASTIN [Suspect]
     Indication: OVARIAN CANCER RECURRENT
     Dosage: 10 MG/2 KG DAYS 1, 15
     Dates: start: 20070719
  3. HYCAMTIN [Suspect]
     Dosage: 4MG/M2 DAYS 1, 8, 15
  4. CALCIUM [Concomitant]
  5. SYNTHROID [Concomitant]
  6. GLUCOSAMINE + CHONDROITIN [Concomitant]
  7. VYTORIN [Concomitant]
  8. ATENOLOL [Concomitant]
  9. COMPAZINE [Concomitant]
  10. DARBEPOETIN [Concomitant]
  11. NEULASTA [Concomitant]
  12. NEUPOGEN [Concomitant]
  13. MIRALAX [Concomitant]

REACTIONS (4)
  - ANAEMIA [None]
  - INTESTINAL OBSTRUCTION [None]
  - NEUTROPENIA [None]
  - THROMBOCYTOPENIA [None]
